FAERS Safety Report 8467497 (Version 5)
Quarter: 2013Q3

REPORT INFORMATION
  Report Type: Report from Study
  Country: FR (occurrence: FR)
  Receive Date: 20120320
  Receipt Date: 20130920
  Transmission Date: 20140515
  Serious: Yes (Death, Hospitalization, Other)
  Sender: FDA-Public Use
  Company Number: PHHY2011FR22561

PATIENT
  Age: 59 Year
  Sex: Male
  Weight: 58 kg

DRUGS (4)
  1. STI571 [Suspect]
     Indication: CHRONIC MYELOID LEUKAEMIA
     Dosage: UNK
     Route: 048
     Dates: start: 20081110, end: 20100603
  2. PROGRAF [Suspect]
     Dosage: 1.5 MG, BID
  3. ELDISINE [Concomitant]
     Dosage: UNK
  4. DEXAMETHASONE [Concomitant]
     Dosage: UNK

REACTIONS (11)
  - Acute lymphocytic leukaemia recurrent [Fatal]
  - Renal failure acute [Not Recovered/Not Resolved]
  - General physical health deterioration [Unknown]
  - Weight decreased [Recovered/Resolved]
  - Asthenia [Recovered/Resolved]
  - Coma [Unknown]
  - Convulsion [Unknown]
  - Toxicity to various agents [Recovered/Resolved]
  - Dyspnoea [Recovered/Resolved]
  - Hyponatraemia [Unknown]
  - Diarrhoea [Unknown]
